FAERS Safety Report 9135968 (Version 1)
Quarter: 2013Q1

REPORT INFORMATION
  Report Type: Spontaneous
  Country: US (occurrence: US)
  Receive Date: 20130304
  Receipt Date: 20130304
  Transmission Date: 20140127
  Serious: No
  Sender: FDA-Public Use
  Company Number: US-ABBOTT-12P-163-0935035-00

PATIENT
  Age: 72 Year
  Sex: Male
  Weight: 113.5 kg

DRUGS (4)
  1. ANDROGEL 1.62% PUMP [Suspect]
     Indication: BLOOD TESTOSTERONE DECREASED
     Dosage: 4 PUMPS DAILY
     Route: 061
     Dates: start: 2010, end: 2011
  2. ANDROGEL 1.62% [Suspect]
     Dosage: 6 PUMPS DAILY
     Route: 061
     Dates: start: 2011
  3. CREAM [Concomitant]
     Indication: PSORIASIS
  4. SINGULAIR [Concomitant]
     Indication: HYPERSENSITIVITY

REACTIONS (3)
  - Drug administered at inappropriate site [Not Recovered/Not Resolved]
  - Application site erythema [Not Recovered/Not Resolved]
  - Blood testosterone decreased [Not Recovered/Not Resolved]
